FAERS Safety Report 9254284 (Version 4)
Quarter: 2013Q2

REPORT INFORMATION
  Report Type: Spontaneous
  Country: US (occurrence: None)
  Receive Date: 20130422
  Receipt Date: 20130524
  Transmission Date: 20140414
  Serious: Yes (Other)
  Sender: FDA-Public Use
  Company Number: 2013P1004770

PATIENT
  Age: 18 Year
  Sex: Female

DRUGS (2)
  1. MYORISAN [Suspect]
     Dates: start: 20130307, end: 20130405
  2. ORTH-TRICYCLEN [Concomitant]

REACTIONS (5)
  - Maternal exposure during pregnancy [None]
  - Treatment noncompliance [None]
  - Pregnancy [None]
  - Haemorrhage in pregnancy [None]
  - Abortion spontaneous [None]
